FAERS Safety Report 17450311 (Version 1)
Quarter: 2020Q1

REPORT INFORMATION
  Report Type: Spontaneous
  Country: US (occurrence: US)
  Receive Date: 20200208
  Receipt Date: 20200208
  Transmission Date: 20200409
  Serious: Yes (Hospitalization)
  Sender: FDA-Public Use
  Company Number: None

PATIENT
  Age: 5 Year
  Sex: Male
  Weight: 39.3 kg

DRUGS (5)
  1. ONCASPAR [Suspect]
     Active Substance: PEGASPARGASE
     Dates: end: 20200113
  2. METHOTREXATE. [Suspect]
     Active Substance: METHOTREXATE
     Dates: end: 20200117
  3. CYTARABINE. [Suspect]
     Active Substance: CYTARABINE
     Route: 037
     Dates: end: 20200110
  4. VINCRISTINE SULFATE. [Suspect]
     Active Substance: VINCRISTINE SULFATE
     Dates: end: 20200124
  5. DEXAMETHASONE. [Suspect]
     Active Substance: DEXAMETHASONE
     Dates: end: 20200207

REACTIONS (20)
  - Weight increased [None]
  - Ecchymosis [None]
  - Coagulopathy [None]
  - Staphylococcus test positive [None]
  - Diarrhoea [None]
  - Application site erythema [None]
  - Lactic acidosis [None]
  - Abdominal pain [None]
  - Blood bilirubin increased [None]
  - Fibrin D dimer increased [None]
  - International normalised ratio increased [None]
  - Enterocolitis [None]
  - Platelet count decreased [None]
  - Venoocclusive liver disease [None]
  - Ascites [None]
  - Hyperbilirubinaemia [None]
  - Hepatic enzyme increased [None]
  - Generalised oedema [None]
  - Acute respiratory failure [None]
  - Neutropenia [None]

NARRATIVE: CASE EVENT DATE: 20200206
